FAERS Safety Report 6178222-1 (Version None)
Quarter: 2009Q2

REPORT INFORMATION
  Report Type: 
  Country: None (occurrence: None)
  Receive Date: 20090504
  Receipt Date: 20090427
  Transmission Date: 20091009
  Serious: Yes (Death, Hospitalization, Congenital Anomaly)
  Sender: FDA-Public Use
  Company Number: A0679383A

PATIENT
  Sex: Female

DRUGS (2)
  1. PAXIL [Suspect]
     Indication: DEPRESSION
     Dates: start: 19950101, end: 19960101
  2. VITAMIN TAB [Concomitant]

REACTIONS (19)
  - ANAEMIA [None]
  - ATRIAL SEPTAL DEFECT [None]
  - CARDIAC FAILURE CONGESTIVE [None]
  - CARDIAC MURMUR [None]
  - CONGENITAL ANOMALY [None]
  - CONVULSION [None]
  - DEHYDRATION [None]
  - DRUG EXPOSURE DURING PREGNANCY [None]
  - EISENMENGER'S SYNDROME [None]
  - EPISTAXIS [None]
  - FALL [None]
  - HAEMATEMESIS [None]
  - MATERNAL DRUGS AFFECTING FOETUS [None]
  - OTITIS MEDIA [None]
  - PATENT DUCTUS ARTERIOSUS [None]
  - PNEUMONIA [None]
  - POST PROCEDURAL INFECTION [None]
  - PULMONARY HYPERTENSION [None]
  - TRAUMATIC BRAIN INJURY [None]
